FAERS Safety Report 6030953-X (Version None)
Quarter: 2009Q1

REPORT INFORMATION
  Report Type: 
  Country: None (occurrence: None)
  Receive Date: 20090106
  Receipt Date: 20081223
  Transmission Date: 20090719
  Serious: Yes (Hospitalization)
  Sender: FDA-Public Use
  Company Number: TPG2008A01355

PATIENT
  Age: 56 Year
  Sex: Female

DRUGS (14)
  1. ACTOS [Suspect]
     Indication: RENAL FAILURE
     Dosage: 30 MG (30 MG,1 IN 1 D)
     Route: 048
     Dates: start: 20070831, end: 20071002
  2. ACTOS [Suspect]
     Indication: TYPE 2 DIABETES MELLITUS
     Dosage: 30 MG (30 MG,1 IN 1 D)
     Route: 048
     Dates: start: 20070831, end: 20071002
  3. IRBESARTAN [Concomitant]
  4. METOPROLOL TARTRATE [Concomitant]
  5. LERCANIDIPINE [Concomitant]
  6. ACETYLSALICYLIC ACID SRT [Concomitant]
  7. TORSEMIDE [Concomitant]
  8. ALLOPURINOL [Concomitant]
  9. HUMALOG [Concomitant]
  10. HUMINSULIN BASAL (INSULIN HUMAN) [Concomitant]
  11. PRAVASTATIN [Concomitant]
  12. EZETROL (EZETIMIBE) [Concomitant]
  13. CYNT (MOXONIDINE) [Concomitant]
  14. RAMIPRIL [Concomitant]

REACTIONS (2)
  - CLONUS [None]
  - PHOTOPHOBIA [None]
